FAERS Safety Report 4553937-7 (Version None)
Quarter: 2005Q1

REPORT INFORMATION
  Report Type: 
  Country: None (occurrence: None)
  Receive Date: 20050118
  Receipt Date: 20050103
  Transmission Date: 20050727
  Serious: Yes (Hospitalization)
  Sender: FDA-Public Use
  Company Number: PHRM2005FR00463

PATIENT
  Age: 33 Year
  Sex: Female
  Weight: 98 kg

DRUGS (1)
  1. GLEEVEC [Suspect]
     Indication: EOSINOPHILIA
     Dosage: 100 MG DAILY
     Route: 048
     Dates: start: 20040918, end: 20041002

REACTIONS (12)
  - ALANINE AMINOTRANSFERASE INCREASED [None]
  - ALDOLASE INCREASED [None]
  - ARTHRALGIA [None]
  - BACK PAIN [None]
  - BLOOD CREATINE PHOSPHOKINASE INCREASED [None]
  - INFLAMMATION [None]
  - LEUKOCYTOSIS [None]
  - MYALGIA [None]
  - MYOGLOBINAEMIA [None]
  - OEDEMA PERIPHERAL [None]
  - PYREXIA [None]
  - RHABDOMYOLYSIS [None]
